FAERS Safety Report 8065693-9 (Version None)
Quarter: 2012Q1

REPORT INFORMATION
  Report Type: 
  Country: None (occurrence: None)
  Receive Date: 20120124
  Receipt Date: 20120118
  Transmission Date: 20120608
  Serious: Yes (Other)
  Sender: FDA-Public Use
  Company Number: US-BAYER-2012-006432

PATIENT
  Age: 16 Year
  Sex: Female

DRUGS (3)
  1. YAZ [Suspect]
     Dosage: UNK
     Dates: start: 20100917, end: 20101017
  2. YAZ [Suspect]
     Dosage: UNK
     Dates: start: 20080604, end: 20080805
  3. YAZ [Suspect]
     Dosage: UNK
     Dates: start: 20090225, end: 20100622

REACTIONS (2)
  - CHOLECYSTECTOMY [None]
  - INJURY [None]
